FAERS Safety Report 10086376 (Version 3)
Quarter: 2014Q3

REPORT INFORMATION
  Report Type: Spontaneous
  Country: IT (occurrence: IT)
  Receive Date: 20140418
  Receipt Date: 20140721
  Transmission Date: 20150326
  Serious: Yes (Hospitalization)
  Sender: FDA-Public Use
  Company Number: IT-PFIZER INC-2014107884

PATIENT
  Age: 45 Year
  Sex: Male

DRUGS (3)
  1. ALPRAZOLAM. [Suspect]
     Active Substance: ALPRAZOLAM
     Dosage: 80 ML (TOTAL)
     Route: 048
     Dates: start: 20140208, end: 20140208
  2. EN [Suspect]
     Active Substance: DELORAZEPAM
     Dosage: 40 ML (TOTAL) (STRENGTH 1 MG/ML)
     Route: 048
     Dates: start: 20140208, end: 20140208
  3. CITALOPRAM [Suspect]
     Active Substance: CITALOPRAM HYDROBROMIDE
     Dosage: 20 ML (TOTAL)
     Route: 048
     Dates: start: 20140208, end: 20140208

REACTIONS (2)
  - Sopor [Recovering/Resolving]
  - Drug abuse [Recovering/Resolving]

NARRATIVE: CASE EVENT DATE: 20140208
